FAERS Safety Report 18253302 (Version 1)
Quarter: 2020Q3

REPORT INFORMATION
  Report Type: Spontaneous
  Country: US (occurrence: US)
  Receive Date: 20200910
  Receipt Date: 20200910
  Transmission Date: 20201103
  Serious: No
  Sender: FDA-Public Use
  Company Number: US-ASTRAZENECA-2020SE95450

PATIENT
  Age: 21248 Day
  Sex: Female
  Weight: 140.6 kg

DRUGS (5)
  1. BUDESONIDE AND FORMOTEROL AEROSOL [Suspect]
     Active Substance: BUDESONIDE\FORMOTEROL FUMARATE DIHYDRATE
     Indication: ASTHMA
     Dosage: 160/4.5 MCG 2 RESPIRATORY INHALATIONS TWICE DAILY
     Route: 055
     Dates: start: 20200720
  2. SYMBICORT [Suspect]
     Active Substance: BUDESONIDE\FORMOTEROL FUMARATE DIHYDRATE
     Indication: ASTHMA
     Dosage: 80/4.5 MCG UNKNOWN UNKNOWN
     Route: 055
  3. UNSPECIFIED ALLERGY PILL [Concomitant]
     Indication: THROAT IRRITATION
     Dosage: UNKNOWN
     Route: 065
  4. BUDESONIDE AND FORMOTEROL AEROSOL [Suspect]
     Active Substance: BUDESONIDE\FORMOTEROL FUMARATE DIHYDRATE
     Indication: ASTHMA
     Dosage: 160/4.5 MCG 2 RESPIRATORY INHALATIONS TWICE DAILY
     Route: 055
     Dates: start: 20200720
  5. DUPIXENT [Concomitant]
     Active Substance: DUPILUMAB
     Dosage: UNKNOWN
     Route: 065

REACTIONS (3)
  - Throat irritation [Not Recovered/Not Resolved]
  - Pharyngeal swelling [Not Recovered/Not Resolved]
  - Drug delivery system issue [Unknown]

NARRATIVE: CASE EVENT DATE: 20200720
